FAERS Safety Report 7935645-5 (Version None)
Quarter: 2011Q4

REPORT INFORMATION
  Report Type: 
  Country: None (occurrence: None)
  Receive Date: 20111123
  Receipt Date: 20111114
  Transmission Date: 20120403
  Serious: Yes (Hospitalization, Other)
  Sender: FDA-Public Use
  Company Number: US-ELI_LILLY_AND_COMPANY-US201111004691

PATIENT
  Age: 69 Year
  Weight: 134 kg

DRUGS (7)
  1. DEXAMETHASONE [Concomitant]
     Indication: MULTIPLE MYELOMA
     Dosage: 40 MG, QD. DAYS 1, 8, 15 AND 22
     Route: 048
     Dates: start: 20110726
  2. ASPIRIN [Concomitant]
     Route: 048
  3. REVLIMID [Concomitant]
     Indication: MULTIPLE MYELOMA
     Dosage: 25 MG, QD. DAYS 1-21
     Route: 048
     Dates: start: 20110726
  4. METFORMIN HCL [Concomitant]
  5. HUMALOG [Suspect]
     Dosage: UNK, UNKNOWN
     Route: 065
  6. COUMADIN [Concomitant]
  7. LANTUS [Concomitant]

REACTIONS (4)
  - INTERNATIONAL NORMALISED RATIO INCREASED [None]
  - HYPOGLYCAEMIA [None]
  - CARDIAC FAILURE CONGESTIVE [None]
  - HYPOKALAEMIA [None]
